FAERS Safety Report 6998522-2 (Version None)
Quarter: 2010Q3

REPORT INFORMATION
  Report Type: 
  Country: None (occurrence: None)
  Receive Date: 20100920
  Receipt Date: 20100311
  Transmission Date: 20110219
  Serious: Yes (Other)
  Sender: FDA-Public Use
  Company Number: US-ASTRAZENECA-2009UW20739

PATIENT
  Age: 545 Month
  Sex: Male

DRUGS (5)
  1. SEROQUEL [Suspect]
     Route: 048
     Dates: start: 20040925
  2. GEODON [Concomitant]
     Dates: start: 20040925
  3. PROZAC [Concomitant]
     Dates: start: 20040925
  4. RANITIDINE [Concomitant]
     Indication: GASTROOESOPHAGEAL REFLUX DISEASE
     Dates: start: 20040925
  5. ZOCOR [Concomitant]
     Dates: start: 20070201

REACTIONS (4)
  - DYSLIPIDAEMIA [None]
  - KETOACIDOSIS [None]
  - PANCREATITIS [None]
  - TYPE 2 DIABETES MELLITUS [None]
